FAERS Safety Report 5786827-2 (Version None)
Quarter: 2008Q2

REPORT INFORMATION
  Report Type: 
  Country: None (occurrence: None)
  Receive Date: 20080618
  Receipt Date: 20080526
  Transmission Date: 20081010
  Serious: Yes (Disabling)
  Sender: FDA-Public Use
  Company Number: 6043129

PATIENT
  Age: 59 Year
  Sex: Male

DRUGS (7)
  1. LEVOTHYROXINE SODIUM [Suspect]
     Indication: HYPOTHYROIDISM
     Dosage: 150 MG (150 MC-2), ORAL
     Route: 048
  2. BISOPROLOL FUMARATE [Suspect]
     Indication: CORONARY ARTERY INSUFFICIENCY
     Dosage: 2.5 MG THEN 1.25 MG, ORAL
     Route: 048
  3. METHYPREDNISOLONE (SOLUTION FOR INJECTION) (METHYLPREDNISOLONE) [Suspect]
     Indication: DRUG USE FOR UNKNOWN INDICATION
     Dosage: 40 MG (40 MG, 1 D); INTRAVENOUS (NOT OTHERWISE SPECIFIED
     Route: 042
     Dates: start: 20040609, end: 20050629
  4. ESOMEPRAZOLE MAGNESIUM [Suspect]
     Indication: DRUG USE FOR UNKNOWN INDICATION
     Dosage: ORAL
     Route: 048
     Dates: start: 20050401
  5. GEMZAR [Suspect]
     Indication: SARCOMA
     Dosage: 675 MG/M2 (675 MG/M2, 1 D) INTRAVENOUS (NOT OTHERWISE SPECIFIED)
     Route: 042
     Dates: start: 20040609, end: 20050629
  6. TAXOTERE [Suspect]
     Indication: SARCOMA
     Dosage: 75 MG/M2 (75 MG/M2, 1, D); INTRAVENOUS (NOT OTHERWISE SPECIFIED)
     Route: 042
     Dates: start: 20040609, end: 20050221
  7. KYTRIL [Suspect]
     Indication: DRUG USE FOR UNKNOWN INDICATION
     Dosage: 3 MG (3 MG, 1 D); INTRAVENOUS
     Route: 042
     Dates: start: 20040609, end: 20050629

REACTIONS (2)
  - CONDITION AGGRAVATED [None]
  - RENAL FAILURE [None]
